FAERS Safety Report 9358601 (Version 1)
Quarter: 2013Q2

REPORT INFORMATION
  Report Type: Spontaneous
  Country: GR (occurrence: GR)
  Receive Date: 20130620
  Receipt Date: 20130620
  Transmission Date: 20140414
  Serious: Yes (Hospitalization)
  Sender: FDA-Public Use
  Company Number: PHHY2013GR061363

PATIENT
  Age: 68 Year
  Sex: Female

DRUGS (4)
  1. FENTANYL [Suspect]
     Dosage: 25 UG/HR, Q72H
     Route: 062
  2. AMITRIPTYLINE [Interacting]
     Indication: DEPRESSION
     Dosage: 25 MG, BD
  3. AMITRIPTYLINE [Interacting]
     Indication: PAIN IN EXTREMITY
  4. LINEZOLID [Interacting]
     Dosage: 600 MG, Q12H

REACTIONS (17)
  - Sepsis [Unknown]
  - General physical health deterioration [Recovered/Resolved]
  - Serotonin syndrome [Unknown]
  - Pain in extremity [Unknown]
  - Pyrexia [Unknown]
  - Tachycardia [Unknown]
  - Hyperhidrosis [Unknown]
  - Tremor [Unknown]
  - Chills [Unknown]
  - Myoclonus [Unknown]
  - Mental status changes [Recovered/Resolved]
  - Disorientation [Recovered/Resolved]
  - Confusional state [Recovered/Resolved]
  - Coma [Recovered/Resolved]
  - Dyspnoea [Unknown]
  - Restlessness [Unknown]
  - Drug interaction [Unknown]
